FAERS Safety Report 21488444 (Version 2)
Quarter: 2022Q4

REPORT INFORMATION
  Report Type: Spontaneous
  Country: US (occurrence: None)
  Receive Date: 20221021
  Receipt Date: 20221116
  Transmission Date: 20230113
  Serious: Yes (Hospitalization)
  Sender: FDA-Public Use
  Company Number: US-Merck Healthcare KGaA-9358090

PATIENT
  Age: 74 Year
  Sex: Female

DRUGS (1)
  1. REBIF [Suspect]
     Active Substance: INTERFERON BETA-1A
     Indication: Multiple sclerosis
     Dosage: 44MCG/0.5ML
     Route: 058
     Dates: start: 2009

REACTIONS (3)
  - Subdural haematoma [Unknown]
  - Fall [Unknown]
  - Accident [Unknown]

NARRATIVE: CASE EVENT DATE: 20220702
